FAERS Safety Report 4868815-3 (Version None)
Quarter: 2005Q4

REPORT INFORMATION
  Report Type: 
  Country: None (occurrence: None)
  Receive Date: 20051223
  Receipt Date: 20051207
  Transmission Date: 20060501
  Serious: Yes (Hospitalization)
  Sender: FDA-Public Use
  Company Number: JP200511003455

PATIENT
  Age: 75 Year
  Sex: Female

DRUGS (3)
  1. EVISTA [Suspect]
     Indication: OSTEOPOROSIS POSTMENOPAUSAL
     Dosage: 60 MG DAILY (1/D) ORAL
     Route: 048
     Dates: start: 20051129, end: 20051129
  2. ONE-ALPHA (ALFACALCIDOL) TABLET [Concomitant]
  3. ASPARA-CA (ASPARTATE CALCIUM) [Concomitant]

REACTIONS (4)
  - ANAPHYLACTIC REACTION [None]
  - BLOOD BILIRUBIN INCREASED [None]
  - FALL [None]
  - VENTRICULAR EXTRASYSTOLES [None]
